FAERS Safety Report 8821545 (Version 1)
Quarter: 2012Q4

REPORT INFORMATION
  Report Type: 
  Country: US (occurrence: US)
  Receive Date: 20121002
  Receipt Date: 20121002
  Transmission Date: 20130627
  Serious: Yes (Other)
  Sender: FDA-Public Use
  Company Number: US-PFIZER INC-2012239316

PATIENT
  Age: 62 Year
  Sex: Female
  Weight: 72.56 kg

DRUGS (10)
  1. TOVIAZ [Suspect]
     Indication: INCONTINENCE
     Dosage: UNK
     Route: 048
     Dates: start: 20120815, end: 20120912
  2. TOVIAZ [Suspect]
     Indication: HYPERTONIC BLADDER
  3. METHOTREXATE [Concomitant]
     Indication: RHEUMATOID ARTHRITIS
     Dosage: UNK
  4. CELEBREX [Concomitant]
     Indication: RHEUMATOID ARTHRITIS
     Dosage: UNK
  5. MIMVEY [Concomitant]
     Dosage: UNK
  6. ENBREL [Concomitant]
     Dosage: UNK, 2x/week
  7. SYNTHROID [Concomitant]
     Dosage: UNK
  8. FOLIC ACID [Concomitant]
     Dosage: UNK
  9. VITAMIN D [Concomitant]
     Dosage: UNK
  10. LANSOPRAZOLE [Concomitant]
     Dosage: UNK

REACTIONS (1)
  - Blood urine present [Unknown]
